FAERS Safety Report 23365910 (Version 4)
Quarter: 2024Q2

REPORT INFORMATION
  Report Type: Report from Study
  Country: US (occurrence: US)
  Receive Date: 20240104
  Receipt Date: 20240425
  Transmission Date: 20240716
  Serious: Yes (Hospitalization)
  Sender: FDA-Public Use
  Company Number: US-ABBVIE-5483633

PATIENT
  Age: 85 Year
  Sex: Female

DRUGS (2)
  1. RINVOQ [Suspect]
     Active Substance: UPADACITINIB
     Indication: Rheumatoid arthritis
     Route: 048
     Dates: start: 20220608
  2. RINVOQ [Suspect]
     Active Substance: UPADACITINIB
     Indication: Rheumatoid arthritis
     Route: 048
     Dates: start: 20200618, end: 20240314

REACTIONS (10)
  - Hypertension [Unknown]
  - COVID-19 [Recovered/Resolved]
  - Transient ischaemic attack [Unknown]
  - Gastroenteritis viral [Unknown]
  - COVID-19 [Unknown]
  - Rheumatoid arthritis [Unknown]
  - Dehydration [Unknown]
  - Laryngeal disorder [Unknown]
  - Blood pressure decreased [Unknown]
  - Immune system disorder [Unknown]

NARRATIVE: CASE EVENT DATE: 20231018
